FAERS Safety Report 15304129 (Version 1)
Quarter: 2018Q3

REPORT INFORMATION
  Report Type: Spontaneous
  Country: US (occurrence: US)
  Receive Date: 20180821
  Receipt Date: 20180821
  Transmission Date: 20181010
  Serious: No
  Sender: FDA-Public Use
  Company Number: US-AMGEN INC.-USASP2018105039

PATIENT
  Age: 39 Year
  Sex: Female

DRUGS (1)
  1. AIMOVIG [Suspect]
     Active Substance: ERENUMAB-AOOE
     Indication: PRODUCT USED FOR UNKNOWN INDICATION
     Dosage: 70 MG, UNK
     Route: 065
     Dates: start: 20180725

REACTIONS (5)
  - Contusion [Unknown]
  - Migraine [Unknown]
  - Rash erythematous [Not Recovered/Not Resolved]
  - Rash pruritic [Not Recovered/Not Resolved]
  - Skin burning sensation [Not Recovered/Not Resolved]

NARRATIVE: CASE EVENT DATE: 20180726
